FAERS Safety Report 6687519-8 (Version None)
Quarter: 2010Q2

REPORT INFORMATION
  Report Type: 
  Country: None (occurrence: None)
  Receive Date: 20100419
  Receipt Date: 20091215
  Transmission Date: 20101027
  Serious: No
  Sender: FDA-Public Use
  Company Number: US-ABBOTT-09P-163-0609547-00

PATIENT
  Sex: Female
  Weight: 61.29 kg

DRUGS (7)
  1. LUPRON DEPOT-PED [Suspect]
     Indication: PRECOCIOUS PUBERTY
     Route: 050
     Dates: start: 20090301
  2. ZANTAC [Concomitant]
     Indication: HYPERSENSITIVITY
  3. ALLEGRA [Concomitant]
     Indication: HYPERSENSITIVITY
  4. BIAXIN [Concomitant]
     Indication: URINARY TRACT INFECTION
  5. IBUPROFEN [Concomitant]
     Indication: ARTHRITIS
  6. SARNA ANTIBIOTIC LOTION [Concomitant]
     Indication: HYPERAESTHESIA
  7. ALBUTEROL [Concomitant]
     Indication: DRUG USE FOR UNKNOWN INDICATION
     Route: 055

REACTIONS (6)
  - BODY HEIGHT INCREASED [None]
  - BREAST ENLARGEMENT [None]
  - CRYING [None]
  - EMOTIONAL DISORDER [None]
  - URINARY TRACT INFECTION [None]
  - WEIGHT INCREASED [None]
